FAERS Safety Report 6049086-1 (Version None)
Quarter: 2009Q1

REPORT INFORMATION
  Report Type: 
  Country: None (occurrence: None)
  Receive Date: 20090123
  Receipt Date: 20090112
  Transmission Date: 20090719
  Serious: Yes (Death, Other)
  Sender: FDA-Public Use
  Company Number: US-ROCHE-608445

PATIENT
  Age: 41 Year
  Sex: Female

DRUGS (9)
  1. DIAZEPAM [Suspect]
     Indication: SEDATIVE THERAPY
     Route: 065
  2. FLECAINIDE ACETATE [Suspect]
     Indication: DRUG USE FOR UNKNOWN INDICATION
     Dosage: ROUTE REPORTED AS INGESTION, INGESTED FLECAINIDE TABLETS (100 MGX12)
     Route: 048
  3. FLECAINIDE ACETATE [Suspect]
     Route: 048
  4. PROPOFOL [Suspect]
     Indication: SEDATIVE THERAPY
     Route: 065
  5. LORAZEPAM [Suspect]
     Indication: DRUG USE FOR UNKNOWN INDICATION
     Route: 065
  6. AMIODARONE HCL [Suspect]
     Indication: DRUG USE FOR UNKNOWN INDICATION
     Route: 065
  7. SODIUM BICARBONATE [Suspect]
     Indication: DRUG USE FOR UNKNOWN INDICATION
     Dosage: RECEIVED 10 AMPOULES
     Route: 065
  8. MAGNESIUM SULFATE [Suspect]
     Indication: DRUG USE FOR UNKNOWN INDICATION
     Route: 065
  9. DOPAMINE HCL [Suspect]
     Indication: DRUG USE FOR UNKNOWN INDICATION
     Route: 065

REACTIONS (2)
  - CARDIAC ARREST [None]
  - COMPLETED SUICIDE [None]
